FAERS Safety Report 10787407 (Version 2)
Quarter: 2015Q1

REPORT INFORMATION
  Report Type: Report from Study
  Country: MX (occurrence: MX)
  Receive Date: 20150212
  Receipt Date: 20150227
  Transmission Date: 20150721
  Serious: Yes (Death)
  Sender: FDA-Public Use
  Company Number: PHHY2015MX016558

PATIENT
  Age: 86 Year
  Sex: Female

DRUGS (2)
  1. OXYGEN. [Concomitant]
     Active Substance: OXYGEN
     Indication: PRODUCT USED FOR UNKNOWN INDICATION
     Dosage: UNK
     Route: 065
  2. ONBREZ [Suspect]
     Active Substance: INDACATEROL
     Indication: LUNG DISORDER
     Dosage: 150 UG, QD
     Route: 065

REACTIONS (3)
  - Dry throat [Not Recovered/Not Resolved]
  - Product use issue [Unknown]
  - Respiratory arrest [Fatal]

NARRATIVE: CASE EVENT DATE: 20150123
